FAERS Safety Report 6330090-0 (Version None)
Quarter: 2009Q3

REPORT INFORMATION
  Report Type: 
  Country: None (occurrence: None)
  Receive Date: 20090827
  Receipt Date: 20090820
  Transmission Date: 20100115
  Serious: Yes (Hospitalization)
  Sender: FDA-Public Use
  Company Number: US-BIOGENIDEC-2009BI011471

PATIENT
  Age: 48 Year
  Sex: Female
  Weight: 63 kg

DRUGS (4)
  1. TYSABRI [Suspect]
     Indication: MULTIPLE SCLEROSIS
     Route: 042
     Dates: start: 20070924
  2. BROMOCRIPTINE [Concomitant]
     Indication: PITUITARY TUMOUR
  3. EFFEXOR [Concomitant]
     Indication: BIPOLAR DISORDER
  4. KLONOPIN [Concomitant]
     Indication: BIPOLAR DISORDER

REACTIONS (15)
  - ANAEMIA [None]
  - BLOOD CHOLESTEROL INCREASED [None]
  - BURSITIS [None]
  - CARPAL TUNNEL SYNDROME [None]
  - CENTRAL NERVOUS SYSTEM LESION [None]
  - FALL [None]
  - HEADACHE [None]
  - INFLUENZA LIKE ILLNESS [None]
  - MASS [None]
  - OEDEMA PERIPHERAL [None]
  - PAIN [None]
  - PAIN OF SKIN [None]
  - TENDONITIS [None]
  - VITAMIN B12 DECREASED [None]
  - VITAMIN D DECREASED [None]
